FAERS Safety Report 9467889 (Version 2)
Quarter: 2013Q3

REPORT INFORMATION
  Report Type: Report from Study
  Country: MX (occurrence: MX)
  Receive Date: 20130821
  Receipt Date: 20130912
  Transmission Date: 20140515
  Serious: Yes (Other)
  Sender: FDA-Public Use
  Company Number: PHHY2013MX090359

PATIENT
  Age: 87 Year
  Sex: Female

DRUGS (10)
  1. EXFORGE HCT [Suspect]
     Indication: HYPERTENSION
     Dosage: 1 DF (160/5/12.5 MG), DAILY
     Route: 048
     Dates: start: 20130816, end: 20130909
  2. DIOVAN [Suspect]
     Indication: HYPERTENSION
     Dosage: 1.5 DF (80MG) DAILY
     Route: 048
     Dates: end: 201308
  3. DIOVAN [Suspect]
     Indication: HYPERTENSION
  4. FOSAMAX PLUS [Concomitant]
     Indication: SPINAL DISORDER
     Dosage: 1 UKN, QW
     Route: 065
     Dates: start: 2005
  5. TYLEX                              /00116401/ [Concomitant]
     Indication: PAIN
     Dosage: UNK UKN, UNK
     Dates: start: 2012
  6. VARTALON [Concomitant]
     Indication: BONE DISORDER
     Dosage: UNK UKN, UNK
  7. LOSECA [Concomitant]
     Indication: GASTRIC DISORDER
     Dosage: 1 UKN, DAILY
     Dates: start: 2011
  8. METEOSPASMYL [Concomitant]
     Indication: GASTROINTESTINAL DISORDER
     Dosage: UNK UKN, UNK
     Dates: start: 201304
  9. KETOROLAC [Concomitant]
     Indication: PAIN
     Dosage: UNK UKN, UNK
     Dates: start: 201308
  10. RIVOTRIL [Concomitant]
     Indication: SLEEP DISORDER
     Dosage: 6 UKN, DAILY
     Dates: start: 2010

REACTIONS (3)
  - Rib fracture [Not Recovered/Not Resolved]
  - Local swelling [Not Recovered/Not Resolved]
  - Dizziness [Not Recovered/Not Resolved]
